FAERS Safety Report 19954066 (Version 1)
Quarter: 2021Q4

REPORT INFORMATION
  Report Type: Spontaneous
  Country: US (occurrence: US)
  Receive Date: 20211011
  Receipt Date: 20211011
  Transmission Date: 20220303
  Serious: Yes (Hospitalization)
  Sender: FDA-Public Use
  Company Number: None

PATIENT
  Sex: Female

DRUGS (4)
  1. ZELBORAF [Suspect]
     Active Substance: VEMURAFENIB
     Indication: Lymphocytic leukaemia
     Dosage: TAKE TWO TABLETS (480 MG) BY MOUTH TWICE DAILY WITH WATER OR AS DIRECTED. DO NOT CRUSH OR CHEW. PROT
     Route: 048
     Dates: start: 20180117
  2. LISINOPRIL [Concomitant]
     Active Substance: LISINOPRIL
  3. NORCO [Concomitant]
     Active Substance: ACETAMINOPHEN\HYDROCODONE BITARTRATE
  4. PREDNISONE [Concomitant]
     Active Substance: PREDNISONE

REACTIONS (1)
  - Surgery [None]
